FAERS Safety Report 21601695 (Version 1)
Quarter: 2022Q4

REPORT INFORMATION
  Report Type: Spontaneous
  Country: US (occurrence: None)
  Receive Date: 20221115
  Receipt Date: 20221115
  Transmission Date: 20230113
  Serious: No
  Sender: FDA-Public Use
  Company Number: None

PATIENT
  Age: 56 Year
  Sex: Male
  Weight: 126.01 kg

DRUGS (7)
  1. CAPECITABINE [Suspect]
     Active Substance: CAPECITABINE
     Indication: Colon cancer
     Dosage: FREQUENCY : TWICE A DAY;?
     Route: 048
     Dates: start: 202209
  2. VITAMINS [Concomitant]
     Active Substance: VITAMINS
  3. NORCO [Concomitant]
     Active Substance: ACETAMINOPHEN\HYDROCODONE BITARTRATE
  4. PROCHLORPERAZINE [Concomitant]
     Active Substance: PROCHLORPERAZINE
  5. TYLENOL [Concomitant]
     Active Substance: ACETAMINOPHEN
  6. VITAMIN B12 [Concomitant]
     Active Substance: CYANOCOBALAMIN
  7. ZOFRAN [Concomitant]
     Active Substance: ONDANSETRON HYDROCHLORIDE

REACTIONS (4)
  - Neuropathy peripheral [None]
  - Decreased appetite [None]
  - Fatigue [None]
  - Headache [None]
